FAERS Safety Report 14664445 (Version 6)
Quarter: 2018Q2

REPORT INFORMATION
  Report Type: Report from Study
  Country: US (occurrence: US)
  Receive Date: 20180321
  Receipt Date: 20180515
  Transmission Date: 20180711
  Serious: Yes (Other)
  Sender: FDA-Public Use
  Company Number: US-TESARO, INC-US-2018TSO01152

PATIENT

DRUGS (5)
  1. VITAMIN C [Concomitant]
     Active Substance: ASCORBIC ACID
     Indication: PRODUCT USED FOR UNKNOWN INDICATION
     Dosage: UNK
  2. ZEJULA [Suspect]
     Active Substance: NIRAPARIB
     Indication: OVARIAN CANCER
     Dosage: 300 MG, QD
     Route: 048
     Dates: start: 20180220, end: 201802
  3. ZEJULA [Suspect]
     Active Substance: NIRAPARIB
     Dosage: 200 MG, QD
     Route: 048
     Dates: start: 20180421
  4. ZEJULA [Suspect]
     Active Substance: NIRAPARIB
     Dosage: 200 MG, QD
     Route: 048
     Dates: start: 20180225
  5. ZOLPIDEM [Concomitant]
     Active Substance: ZOLPIDEM\ZOLPIDEM TARTRATE
     Indication: PRODUCT USED FOR UNKNOWN INDICATION
     Dosage: UNK

REACTIONS (22)
  - Malaise [Unknown]
  - Bone pain [Not Recovered/Not Resolved]
  - Headache [Unknown]
  - Nausea [Not Recovered/Not Resolved]
  - Anorectal discomfort [Unknown]
  - Disturbance in attention [Recovered/Resolved]
  - Insomnia [Recovering/Resolving]
  - Anxiety [Unknown]
  - Dizziness [Unknown]
  - Vomiting [Not Recovered/Not Resolved]
  - Dizziness postural [Unknown]
  - Dry mouth [Recovering/Resolving]
  - White blood cell count decreased [Unknown]
  - Haematemesis [Unknown]
  - Depressed mood [Unknown]
  - Pain [Unknown]
  - Drug dose omission [Unknown]
  - Constipation [Unknown]
  - Herpes zoster [Recovering/Resolving]
  - Pruritus [Unknown]
  - Piloerection [Unknown]
  - Nervousness [Unknown]

NARRATIVE: CASE EVENT DATE: 201802
